FAERS Safety Report 17997853 (Version 1)
Quarter: 2020Q3

REPORT INFORMATION
  Report Type: Spontaneous
  Country: FR (occurrence: FR)
  Receive Date: 20200709
  Receipt Date: 20200709
  Transmission Date: 20201103
  Serious: Yes (Other)
  Sender: FDA-Public Use
  Company Number: FR-TEVA-2020-FR-1231246

PATIENT
  Age: 49 Year
  Sex: Female
  Weight: 47 kg

DRUGS (2)
  1. COPAXONE [Suspect]
     Active Substance: GLATIRAMER ACETATE
     Indication: MULTIPLE SCLEROSIS
     Route: 058
     Dates: start: 20200422
  2. CORTANCYL [Concomitant]
     Active Substance: PREDNISONE

REACTIONS (6)
  - Monoplegia [Recovered/Resolved with Sequelae]
  - Muscle contracture [Recovered/Resolved with Sequelae]
  - Pain in extremity [Recovering/Resolving]
  - Incorrect route of product administration [Unknown]
  - Muscle rigidity [Recovering/Resolving]
  - Muscular weakness [Not Recovered/Not Resolved]

NARRATIVE: CASE EVENT DATE: 20200426
